FAERS Safety Report 24301111 (Version 1)
Quarter: 2024Q3

REPORT INFORMATION
  Report Type: Spontaneous
  Country: US (occurrence: US)
  Receive Date: 20240910
  Receipt Date: 20240910
  Transmission Date: 20241016
  Serious: Yes (Other)
  Sender: TERSERA THERAPEUTICS
  Company Number: US-TERSERA THERAPEUTICS LLC-2024TRS004505

PATIENT

DRUGS (3)
  1. PRIALT [Suspect]
     Active Substance: ZICONOTIDE ACETATE
     Indication: Product used for unknown indication
     Dosage: 0.24 MCG, QD (CONCENTRATION: 1 MCG/ML)
     Route: 037
  2. BUPIVACAINE [Suspect]
     Active Substance: BUPIVACAINE
     Indication: Product used for unknown indication
     Dosage: 2.4 MG, QD (CONCENTRATION: 10 MG/ML)
     Route: 037
  3. MORPHINE [Suspect]
     Active Substance: MORPHINE
     Indication: Product used for unknown indication
     Dosage: 1.2 MG, QD (CONCENTRATION: 5 MG/ML)
     Route: 037

REACTIONS (5)
  - Cerebrospinal fluid leakage [Unknown]
  - Headache [Unknown]
  - Off label use [Unknown]
  - Product use issue [Unknown]
  - Device physical property issue [Unknown]
